FAERS Safety Report 18107329 (Version 1)
Quarter: 2020Q3

REPORT INFORMATION
  Report Type: Spontaneous
  Country: GB (occurrence: GB)
  Receive Date: 20200803
  Receipt Date: 20200803
  Transmission Date: 20201103
  Serious: Yes (Death, Hospitalization, Other)
  Sender: FDA-Public Use
  Company Number: GB-PERRIGO-20GB010453

PATIENT
  Age: 34 Year
  Sex: Male

DRUGS (1)
  1. PARACETAMOL [Suspect]
     Active Substance: ACETAMINOPHEN
     Indication: PRODUCT USED FOR UNKNOWN INDICATION
     Dosage: UNK (OVERDOSE OF SOME 100 PARACETAMOL TABLETS)
     Route: 065

REACTIONS (4)
  - Hepatic encephalopathy [Fatal]
  - Hepatitis non-A non-B [Fatal]
  - Intentional overdose [Fatal]
  - Coma hepatic [Fatal]
